FAERS Safety Report 12319574 (Version 3)
Quarter: 2016Q2

REPORT INFORMATION
  Report Type: Report from Study
  Country: FR (occurrence: FR)
  Receive Date: 20160429
  Receipt Date: 20160519
  Transmission Date: 20160815
  Serious: Yes (Hospitalization, Other)
  Sender: FDA-Public Use
  Company Number: FR-BRISTOL-MYERS SQUIBB COMPANY-BMS-2016-032624

PATIENT
  Age: 49 Year
  Sex: Male
  Weight: 84 kg

DRUGS (14)
  1. LANTUS [Concomitant]
     Active Substance: INSULIN GLARGINE
     Indication: DIABETES MELLITUS
     Dosage: 28 UNIT, QD
     Route: 065
     Dates: start: 2011
  2. APROVEL [Concomitant]
     Active Substance: IRBESARTAN
     Indication: HYPERTENSION
     Dosage: 150 MG, BID
     Route: 065
     Dates: start: 20141002
  3. AMLOR [Concomitant]
     Active Substance: AMLODIPINE BESYLATE
     Indication: HYPERTENSION
     Dosage: 5 MG, BID
     Route: 065
     Dates: start: 20141002
  4. SILODYX [Concomitant]
     Active Substance: SILODOSIN
     Indication: ADVERSE EVENT
     Dosage: 8 MG, QD
     Route: 065
     Dates: start: 20150126
  5. ARAZIL [Concomitant]
     Indication: DIABETIC NEPHROPATHY
     Dosage: UNK
     Route: 065
     Dates: start: 20140528, end: 20140701
  6. SPASFON                            /00765801/ [Concomitant]
     Active Substance: PHLOROGLUCINOL\1,3,5-TRIMETHOXYBENZENE
     Indication: ABDOMINAL PAIN
     Dosage: 2 TAB, TID
     Route: 065
     Dates: start: 20131228, end: 20140204
  7. KAYEXALATE [Concomitant]
     Active Substance: SODIUM POLYSTYRENE SULFONATE
     Indication: HYPERKALAEMIA
     Dosage: 15 G, QD
     Route: 065
     Dates: start: 20131227, end: 20131228
  8. COUMADINE [Concomitant]
     Active Substance: WARFARIN SODIUM
     Indication: PRODUCT USED FOR UNKNOWN INDICATION
     Dosage: 2 MG, QD
     Route: 065
     Dates: start: 20140221
  9. NOVORAPID [Concomitant]
     Active Substance: INSULIN ASPART
     Dosage: 1 DF, UNK
     Route: 065
     Dates: start: 20140305
  10. ENTECAVIR. [Suspect]
     Active Substance: ENTECAVIR
     Indication: HEPATITIS B
     Dosage: 0.5 MG, QD
     Route: 065
     Dates: start: 20110913
  11. AVLOCARDYL                         /00030001/ [Concomitant]
     Active Substance: PROPRANOLOL HYDROCHLORIDE
     Indication: VARICES OESOPHAGEAL
     Dosage: 160 MG, QD
     Route: 065
     Dates: start: 20110520
  12. SOFOSBUVIR [Concomitant]
     Active Substance: SOFOSBUVIR
     Indication: HEPATITIS C
     Dosage: 400 MG, QD
     Route: 065
     Dates: start: 20140616, end: 20141208
  13. DACLATASVIR DIHYDROCHLORIDE [Suspect]
     Active Substance: DACLATASVIR DIHYDROCHLORIDE
     Indication: HEPATITIS C
     Dosage: 60 MG, QD
     Route: 065
     Dates: start: 20140616, end: 20141208
  14. NOVORAPID [Concomitant]
     Active Substance: INSULIN ASPART
     Indication: DIABETES MELLITUS
     Dosage: 100 UNIT, TID
     Route: 065
     Dates: start: 2011, end: 20140204

REACTIONS (15)
  - Peritonitis [Unknown]
  - Abdominal cavity drainage [Unknown]
  - Encephalopathy [Unknown]
  - Enterobacter sepsis [Unknown]
  - Ascites [Recovered/Resolved]
  - Liver transplant [Unknown]
  - Renal failure [Recovered/Resolved]
  - Lung infection [Unknown]
  - Lung disorder [Unknown]
  - Thrombosis [Unknown]
  - Sepsis [Unknown]
  - Pleural effusion [Unknown]
  - Packed red blood cell transfusion [Unknown]
  - Cryoglobulinaemia [Unknown]
  - Strangulated umbilical hernia [Unknown]

NARRATIVE: CASE EVENT DATE: 20131030
